FAERS Safety Report 15111010 (Version 1)
Quarter: 2018Q3

REPORT INFORMATION
  Report Type: Spontaneous
  Country: IT (occurrence: IT)
  Receive Date: 20180705
  Receipt Date: 20180705
  Transmission Date: 20181010
  Serious: Yes (Other)
  Sender: FDA-Public Use
  Company Number: IT-JNJFOC-20180638981

PATIENT

DRUGS (2)
  1. USTEKINUMAB [Suspect]
     Active Substance: USTEKINUMAB
     Indication: PSORIASIS
     Dosage: 45 OR 90 MG, ACCORDING TO BODY WEIGHT, AT WEEKS 0, 4, AND 16).
     Route: 058
  2. RISANKIZUMAB [Suspect]
     Active Substance: RISANKIZUMAB
     Indication: PSORIASIS
     Dosage: SINGLE 18 MG DOSE AT WEEK 0 OR 90 MG OR 180 MG DOSES AT WEEKS 0, 4, AND 16
     Route: 058

REACTIONS (2)
  - Cardiovascular disorder [Unknown]
  - Basal cell carcinoma [Unknown]
